FAERS Safety Report 12876416 (Version 1)
Quarter: 2016Q4

REPORT INFORMATION
  Report Type: Report from Study
  Country: DE (occurrence: DE)
  Receive Date: 20161024
  Receipt Date: 20161024
  Transmission Date: 20170207
  Serious: Yes (Death, Hospitalization)
  Sender: FDA-Public Use
  Company Number: DE-PFIZER INC-2016468651

PATIENT
  Age: 78 Year
  Sex: Female

DRUGS (10)
  1. AMLODIPINE BESILATE [Suspect]
     Active Substance: AMLODIPINE BESYLATE
     Dosage: UNK
     Dates: end: 20160819
  2. VALSARTAN. [Suspect]
     Active Substance: VALSARTAN
     Dosage: UNK
     Dates: end: 20160819
  3. XIPAMIDE [Concomitant]
     Active Substance: XIPAMIDE
     Dosage: UNK
  4. AFINITOR [Suspect]
     Active Substance: EVEROLIMUS
     Indication: BREAST CANCER
     Dosage: 5 MG, DAILY
     Route: 048
     Dates: start: 20160721, end: 20160901
  5. NOVAMINSULFON [Suspect]
     Active Substance: METAMIZOLE
     Dosage: 500 MG, UP TO 4X 30 DROPS DAILY
     Dates: end: 20160914
  6. METOPROLOL. [Concomitant]
     Active Substance: METOPROLOL
     Dosage: 50 MG, 2X/DAY
     Dates: end: 20160914
  7. METFORMIN [Concomitant]
     Active Substance: METFORMIN HYDROCHLORIDE
     Dosage: 500 MG, 1X/DAY
     Dates: end: 20160914
  8. EXEMESTANE. [Suspect]
     Active Substance: EXEMESTANE
     Indication: BREAST CANCER
     Dosage: 25 MG, DAILY
     Route: 048
     Dates: start: 20160721, end: 20160901
  9. ALLOPURINOL. [Concomitant]
     Active Substance: ALLOPURINOL
     Dosage: 150 MG, 1X/DAY
     Dates: end: 20160819
  10. CALCIMAGON-D 3 [Concomitant]
     Dosage: 10 MG, 1X/DAY
     Dates: end: 20160914

REACTIONS (4)
  - Stress cardiomyopathy [Fatal]
  - Acute myocardial infarction [Fatal]
  - Hypotension [Recovered/Resolved]
  - Cardiac failure [Fatal]

NARRATIVE: CASE EVENT DATE: 20160819
